FAERS Safety Report 13783292 (Version 1)
Quarter: 2017Q3

REPORT INFORMATION
  Report Type: Spontaneous
  Country: FR (occurrence: FR)
  Receive Date: 20170724
  Receipt Date: 20170724
  Transmission Date: 20171127
  Serious: Yes (Death)
  Sender: FDA-Public Use
  Company Number: FR-PFIZER INC-2017314917

PATIENT
  Age: 85 Year
  Sex: Female

DRUGS (8)
  1. NORSET [Concomitant]
     Active Substance: MIRTAZAPINE
     Dosage: UNK
  2. VERSATIS [Concomitant]
     Active Substance: LIDOCAINE
  3. NEURONTIN [Suspect]
     Active Substance: GABAPENTIN
     Indication: NEURALGIA
     Dosage: 300 MG, 3X/DAY
     Route: 048
     Dates: end: 20170518
  4. TRILEPTAL [Suspect]
     Active Substance: OXCARBAZEPINE
     Indication: NEURALGIA
     Dosage: 80 MG, 2X/DAY
     Route: 048
     Dates: start: 20170518, end: 20170520
  5. ACEBUTOLOL [Concomitant]
     Active Substance: ACEBUTOLOL
  6. KARDEGIC [Concomitant]
     Active Substance: ASPIRIN LYSINE
     Dosage: 75 MG, POWDER FOR ORAL SOLUTION IN SACHET DOSE
  7. OXYCONTIN [Concomitant]
     Active Substance: OXYCODONE HYDROCHLORIDE
  8. OXYNORM [Concomitant]
     Active Substance: OXYCODONE HYDROCHLORIDE

REACTIONS (3)
  - Status epilepticus [Fatal]
  - Arrhythmia [Fatal]
  - Withdrawal syndrome [Fatal]

NARRATIVE: CASE EVENT DATE: 20170520
